FAERS Safety Report 5543319-3 (Version None)
Quarter: 2007Q4

REPORT INFORMATION
  Report Type: 
  Country: None (occurrence: None)
  Receive Date: 20071206
  Receipt Date: 20071128
  Transmission Date: 20080405
  Serious: Yes (Other)
  Sender: FDA-Public Use
  Company Number: 230737J07USA

PATIENT
  Age: 51 Year
  Sex: Female
  Weight: 77.1115 kg

DRUGS (3)
  1. REBIF [Suspect]
     Indication: MULTIPLE SCLEROSIS
     Dosage: 44 MCG, 3 IN 1 WEEKS, SUBCUTANEOUS
     Route: 058
     Dates: start: 20070711
  2. TRAZODONE HCL [Concomitant]
  3. CLONAZEPAM [Concomitant]

REACTIONS (5)
  - CHOLELITHIASIS [None]
  - DEPRESSION [None]
  - FEELING ABNORMAL [None]
  - PALPITATIONS [None]
  - RASH [None]
